FAERS Safety Report 7914134-8 (Version None)
Quarter: 2011Q4

REPORT INFORMATION
  Report Type: 
  Country: None (occurrence: None)
  Receive Date: 20111115
  Receipt Date: 20111107
  Transmission Date: 20120403
  Serious: Yes (Other)
  Sender: FDA-Public Use
  Company Number: US-US-EMD SERONO, INC.-7092865

PATIENT
  Sex: Female
  Weight: 76 kg

DRUGS (5)
  1. ASPIRIN [Concomitant]
     Indication: ANGIOPATHY
     Route: 048
  2. AZATHROPINE [Concomitant]
     Indication: CROHN'S DISEASE
     Route: 048
  3. METOPROLOL SUCCINATE EXTENDED RELEASE [Concomitant]
     Indication: HYPERTENSION
     Route: 048
  4. REBIF [Suspect]
     Indication: MULTIPLE SCLEROSIS
     Route: 058
     Dates: start: 20070925
  5. POATASSIUM CHLORIDE [Concomitant]
     Route: 048

REACTIONS (3)
  - INJECTION SITE PAIN [None]
  - PORPHYRIA NON-ACUTE [None]
  - INSOMNIA [None]
